FAERS Safety Report 5216208-1 (Version None)
Quarter: 2007Q1

REPORT INFORMATION
  Report Type: 
  Country: None (occurrence: None)
  Receive Date: 20070123
  Receipt Date: 20070108
  Transmission Date: 20070707
  Serious: Yes (Hospitalization)
  Sender: FDA-Public Use
  Company Number: FR-SHR-FR-2007-000396

PATIENT
  Age: 70 Year
  Sex: Female
  Weight: 65 kg

DRUGS (3)
  1. FLUDARABINE PHOSPHAT (SH L 573) [Suspect]
     Route: 042
     Dates: start: 20061109, end: 20061109
  2. MABTHERA [Suspect]
     Indication: LYMPHOMA
     Route: 042
     Dates: start: 20061109, end: 20061109
  3. ENDOXAN [Suspect]
     Indication: LYMPHOMA
     Route: 042
     Dates: start: 20061109, end: 20061109

REACTIONS (4)
  - ACUTE PULMONARY OEDEMA [None]
  - CHEST DISCOMFORT [None]
  - DYSPNOEA [None]
  - OXYGEN SATURATION DECREASED [None]
